FAERS Safety Report 10710931 (Version 1)
Quarter: 2015Q1

REPORT INFORMATION
  Report Type: Spontaneous
  Country: US (occurrence: US)
  Receive Date: 20150114
  Receipt Date: 20150114
  Transmission Date: 20150721
  Serious: Yes (Other)
  Sender: FDA-Public Use
  Company Number: US-ELI_LILLY_AND_COMPANY-US201501000469

PATIENT
  Age: 57 Year
  Sex: Female

DRUGS (1)
  1. PROZAC [Suspect]
     Active Substance: FLUOXETINE HYDROCHLORIDE
     Indication: PRODUCT USED FOR UNKNOWN INDICATION
     Dosage: UNK UNK, UNKNOWN
     Route: 065

REACTIONS (7)
  - Visual impairment [Unknown]
  - Bipolar disorder [Unknown]
  - Suicidal ideation [Unknown]
  - Product solubility abnormal [Unknown]
  - Drug ineffective [Unknown]
  - Gastric bypass [Unknown]
  - Depression [Unknown]
